FAERS Safety Report 6146480-5 (Version None)
Quarter: 2009Q2

REPORT INFORMATION
  Report Type: 
  Country: None (occurrence: None)
  Receive Date: 20090407
  Receipt Date: 20090331
  Transmission Date: 20091009
  Serious: No
  Sender: FDA-Public Use
  Company Number: B0557953A

PATIENT
  Sex: Male
  Weight: 32.5 kg

DRUGS (4)
  1. RELENZA [Suspect]
     Indication: INFLUENZA
     Dosage: 10MG TWICE PER DAY
     Route: 055
     Dates: start: 20090128
  2. KLARICID [Concomitant]
     Route: 048
     Dates: end: 20090128
  3. LOXONIN [Concomitant]
     Route: 048
     Dates: end: 20090128
  4. CALONAL [Concomitant]
     Route: 048
     Dates: end: 20090128

REACTIONS (2)
  - ABNORMAL BEHAVIOUR [None]
  - NO THERAPEUTIC RESPONSE [None]
